FAERS Safety Report 21100425 (Version 1)
Quarter: 2022Q3

REPORT INFORMATION
  Report Type: Spontaneous
  Country: GB (occurrence: GB)
  Receive Date: 20220719
  Receipt Date: 20220719
  Transmission Date: 20221027
  Serious: No
  Sender: FDA-Public Use
  Company Number: None

PATIENT
  Age: 71 Year
  Sex: Male
  Weight: 74 kg

DRUGS (4)
  1. PAXLOVID [Suspect]
     Active Substance: NIRMATRELVIR\RITONAVIR
     Indication: Coronavirus infection
     Dosage: 150 MG
     Dates: start: 20220311
  2. ASPIRIN [Concomitant]
     Active Substance: ASPIRIN
     Indication: Blood pressure abnormal
     Dosage: UNK
  3. BISOPROLOL [Concomitant]
     Active Substance: BISOPROLOL
     Indication: Heart valve replacement
     Dosage: UNK
  4. RAMIPRIL [Concomitant]
     Active Substance: RAMIPRIL
     Indication: Blood pressure abnormal
     Dosage: UNK

REACTIONS (5)
  - Chest discomfort [Not Recovered/Not Resolved]
  - Eye pain [Not Recovered/Not Resolved]
  - Oropharyngeal pain [Unknown]
  - Urticaria [Unknown]
  - Product prescribing error [Unknown]

NARRATIVE: CASE EVENT DATE: 20220311
